FAERS Safety Report 17269162 (Version 1)
Quarter: 2020Q1

REPORT INFORMATION
  Report Type: Spontaneous
  Country: US (occurrence: US)
  Receive Date: 20191223
  Receipt Date: 20191223
  Transmission Date: 20200409
  Serious: No
  Sender: FDA-Public Use
  Company Number: None

PATIENT
  Age: 67 Year
  Sex: Male

DRUGS (1)
  1. JADENU [Suspect]
     Active Substance: DEFERASIROX
     Dosage: ?          OTHER DOSE:1 TABLET;?
     Route: 048
     Dates: start: 201803

REACTIONS (5)
  - Stress [None]
  - Blood pressure increased [None]
  - Product distribution issue [None]
  - Pain in extremity [None]
  - Inappropriate schedule of product administration [None]

NARRATIVE: CASE EVENT DATE: 20191204
